FAERS Safety Report 16338310 (Version 2)
Quarter: 2020Q4

REPORT INFORMATION
  Report Type: Report from Study
  Country: US (occurrence: US)
  Receive Date: 20190521
  Receipt Date: 20201124
  Transmission Date: 20210113
  Serious: Yes (Other)
  Sender: FDA-Public Use
  Company Number: US-JNJFOC-20190337788

PATIENT
  Age: 48 Year
  Sex: Female

DRUGS (1)
  1. STELARA [Suspect]
     Active Substance: USTEKINUMAB
     Indication: CROHN^S DISEASE
     Route: 058
     Dates: start: 20181213, end: 20190404

REACTIONS (4)
  - Pneumonia [Unknown]
  - Deafness [Unknown]
  - Ear infection [Unknown]
  - Chest pain [Unknown]

NARRATIVE: CASE EVENT DATE: 201901
